FAERS Safety Report 5300160-4 (Version None)
Quarter: 2007Q2

REPORT INFORMATION
  Report Type: 
  Country: None (occurrence: None)
  Receive Date: 20070418
  Receipt Date: 20070410
  Transmission Date: 20071010
  Serious: Yes (Other)
  Sender: FDA-Public Use
  Company Number: US-JNJFOC-20070402254

PATIENT
  Age: 18 Year
  Sex: Female

DRUGS (2)
  1. REMICADE [Suspect]
     Indication: CROHN'S DISEASE
     Route: 042
  2. 6-MP [Concomitant]
     Indication: CROHN'S DISEASE

REACTIONS (2)
  - NASAL NECROSIS [None]
  - RHINITIS [None]
